FAERS Safety Report 5031575-X (Version None)
Quarter: 2006Q2

REPORT INFORMATION
  Report Type: 
  Country: None (occurrence: None)
  Receive Date: 20060621
  Receipt Date: 20060524
  Transmission Date: 20061013
  Serious: Yes (Hospitalization)
  Sender: FDA-Public Use
  Company Number: GB-GLAXOSMITHKLINE-B0425072A

PATIENT
  Age: 24 Year
  Sex: Female
  Weight: 3.9 kg

DRUGS (1)
  1. ZYBAN [Suspect]
     Indication: EX-SMOKER
     Route: 048
     Dates: start: 20060510

REACTIONS (2)
  - DYSPNOEA [None]
  - HYPOAESTHESIA [None]
